FAERS Safety Report 5444397-2 (Version None)
Quarter: 2007Q3

REPORT INFORMATION
  Report Type: 
  Country: None (occurrence: None)
  Receive Date: 20070906
  Receipt Date: 20070827
  Transmission Date: 20080115
  Serious: Yes (Other)
  Sender: FDA-Public Use
  Company Number: PHEH2007US09091

PATIENT
  Age: 50 Year
  Sex: Male

DRUGS (2)
  1. ZELNORM [Suspect]
     Indication: IRRITABLE BOWEL SYNDROME
     Dosage: 6 MG, BID
     Route: 048
     Dates: start: 20050911, end: 20060223
  2. BENEFIBER [Concomitant]
     Dosage: 1 TBSP, TWICE A DAY
     Route: 048

REACTIONS (7)
  - ABDOMINAL DISTENSION [None]
  - ABDOMINAL PAIN [None]
  - CONSTIPATION [None]
  - DIVERTICULITIS [None]
  - DRUG INEFFECTIVE [None]
  - FLATULENCE [None]
  - LIPASE INCREASED [None]
